FAERS Safety Report 14686097 (Version 1)
Quarter: 2018Q1

REPORT INFORMATION
  Report Type: Spontaneous
  Country: ES (occurrence: ES)
  Receive Date: 20180327
  Receipt Date: 20180327
  Transmission Date: 20180509
  Serious: Yes (Other)
  Sender: FDA-Public Use
  Company Number: ES-PFIZER INC-2018122791

PATIENT
  Age: 35 Year
  Sex: Female

DRUGS (3)
  1. NATULAN [Suspect]
     Active Substance: PROCARBAZINE HYDROCHLORIDE
     Indication: ANAPLASTIC ASTROCYTOMA
     Dosage: 100 MG, 1X/DAY
     Route: 048
     Dates: start: 20171113, end: 20171126
  2. LOMUSTINE. [Concomitant]
     Active Substance: LOMUSTINE
     Indication: ANAPLASTIC ASTROCYTOMA
     Dosage: 160 MG, 1X/DAY
     Route: 048
     Dates: start: 20171104, end: 20171104
  3. VINCRISTINE SULFATE. [Suspect]
     Active Substance: VINCRISTINE SULFATE
     Indication: ANAPLASTIC ASTROCYTOMA
     Dosage: UNK
     Route: 042
     Dates: start: 20171113, end: 20171202

REACTIONS (1)
  - Urticaria [Recovered/Resolved]

NARRATIVE: CASE EVENT DATE: 20171122
